FAERS Safety Report 11292594 (Version 2)
Quarter: 2015Q3

REPORT INFORMATION
  Report Type: Spontaneous
  Country: DE (occurrence: DE)
  Receive Date: 20150722
  Receipt Date: 20150814
  Transmission Date: 20151125
  Serious: Yes (Life-Threatening, Hospitalization)
  Sender: FDA-Public Use
  Company Number: DE-EISAI MEDICAL RESEARCH-EC-2015-008628

PATIENT
  Age: 75 Year
  Sex: Female
  Weight: 55 kg

DRUGS (5)
  1. FOSAPREPITANT [Concomitant]
     Active Substance: FOSAPREPITANT
     Indication: PROPHYLAXIS OF NAUSEA AND VOMITING
     Route: 042
     Dates: start: 20150404, end: 20150710
  2. 9-FLUOR-16A-METHYPREDNISOLON [Concomitant]
     Dosage: 4 MG DAY 1 + 8/ 8 MG DAY 2 + 3/ DAY ?9 + 10
     Route: 048
     Dates: start: 20150404
  3. 9-FLUOR-16A-METHYPREDNISOLON [Concomitant]
     Indication: PROPHYLAXIS OF NAUSEA AND VOMITING
     Route: 042
     Dates: start: 20150404, end: 20150710
  4. DOMPERIDONE [Concomitant]
     Active Substance: DOMPERIDONE
     Indication: PRODUCT USED FOR UNKNOWN INDICATION
     Dosage: 3 X 2 ML
  5. HALAVEN [Suspect]
     Active Substance: ERIBULIN MESYLATE
     Indication: BREAST CANCER METASTATIC
     Route: 041
     Dates: start: 20150404, end: 20150710

REACTIONS (4)
  - Hyperglycaemia [Recovering/Resolving]
  - Pancreatitis [Recovering/Resolving]
  - Urosepsis [Recovering/Resolving]
  - Obstructive uropathy [Recovered/Resolved with Sequelae]

NARRATIVE: CASE EVENT DATE: 2015
